FAERS Safety Report 7341486-2 (Version None)
Quarter: 2011Q1

REPORT INFORMATION
  Report Type: 
  Country: None (occurrence: None)
  Receive Date: 20110309
  Receipt Date: 20110228
  Transmission Date: 20110831
  Serious: Yes (Death)
  Sender: FDA-Public Use
  Company Number: US-ROCHE-762394

PATIENT
  Age: 9 Year
  Sex: Male

DRUGS (2)
  1. BEVACIZUMAB [Suspect]
     Indication: GLIOBLASTOMA
     Route: 065
  2. IRINOTECAN [Concomitant]
     Indication: GLIOBLASTOMA

REACTIONS (1)
  - MOYAMOYA DISEASE [None]
